FAERS Safety Report 18046339 (Version 2)
Quarter: 2020Q4

REPORT INFORMATION
  Report Type: Spontaneous
  Country: JP (occurrence: JP)
  Receive Date: 20200721
  Receipt Date: 20201019
  Transmission Date: 20210113
  Serious: Yes (Hospitalization)
  Sender: FDA-Public Use
  Company Number: JP-009507513-2007JPN000997J

PATIENT
  Age: 5 Decade
  Sex: Female

DRUGS (5)
  1. KEYTRUDA [Suspect]
     Active Substance: PEMBROLIZUMAB
     Indication: MALIGNANT MELANOMA STAGE III
     Dosage: 200 MILLIGRAM, Q3W
     Route: 041
     Dates: start: 20200212, end: 202006
  2. TALION [Concomitant]
     Indication: PAIN
  3. BILANOA [Concomitant]
     Active Substance: BILASTINE
     Indication: PRURITUS
  4. TALION [Concomitant]
     Indication: PRURITUS
     Dosage: UNK
     Route: 065
     Dates: start: 20200225
  5. BILANOA [Concomitant]
     Active Substance: BILASTINE
     Indication: PAIN
     Dosage: UNK
     Route: 065
     Dates: start: 20200304

REACTIONS (3)
  - Stomatitis [Recovering/Resolving]
  - Ocular hyperaemia [Recovering/Resolving]
  - Sciatica [Recovering/Resolving]

NARRATIVE: CASE EVENT DATE: 20200311
